FAERS Safety Report 4696321-8 (Version None)
Quarter: 2005Q2

REPORT INFORMATION
  Report Type: 
  Country: None (occurrence: None)
  Receive Date: 20050620
  Receipt Date: 20050606
  Transmission Date: 20051028
  Serious: Yes (Other)
  Sender: FDA-Public Use
  Company Number: 2005087310

PATIENT
  Sex: Female
  Weight: 65.7716 kg

DRUGS (2)
  1. CELEBREX [Suspect]
     Indication: OSTEOARTHRITIS
     Dosage: 200 MG (200 MG, 1 IN 1 D) ORAL
     Route: 048
  2. VITAMINS [Concomitant]

REACTIONS (9)
  - BODY HEIGHT DECREASED [None]
  - CONSTIPATION [None]
  - FALL [None]
  - HAEMORRHAGIC DISORDER [None]
  - LIMB INJURY [None]
  - SKIN ATROPHY [None]
  - SPINAL FRACTURE [None]
  - WEIGHT DECREASED [None]
  - WOUND HAEMORRHAGE [None]
